FAERS Safety Report 10072611 (Version 1)
Quarter: 2014Q2

REPORT INFORMATION
  Report Type: Spontaneous
  Country: CA (occurrence: CA)
  Receive Date: 20140411
  Receipt Date: 20140411
  Transmission Date: 20141212
  Serious: Yes (Hospitalization)
  Sender: FDA-Public Use
  Company Number: CA-ABBVIE-14P-028-1221603-00

PATIENT
  Sex: Female

DRUGS (2)
  1. HUMIRA [Suspect]
     Indication: PSORIASIS
     Dosage: LOADING DOSE
     Route: 058
     Dates: start: 201310, end: 201310
  2. HUMIRA [Suspect]
     Route: 058
     Dates: start: 201310, end: 201402

REACTIONS (3)
  - Asthenia [Unknown]
  - Disseminated tuberculosis [Unknown]
  - Alanine aminotransferase increased [Recovered/Resolved]
